FAERS Safety Report 5857498-1 (Version None)
Quarter: 2008Q3

REPORT INFORMATION
  Report Type: 
  Country: None (occurrence: None)
  Receive Date: 20080826
  Receipt Date: 20080815
  Transmission Date: 20090109
  Serious: Yes (Other)
  Sender: FDA-Public Use
  Company Number: US-ROCHE-581220

PATIENT
  Age: 48 Year
  Sex: Female

DRUGS (2)
  1. XELODA [Suspect]
     Dosage: 4 TABLETS IN THE MORNING AND 5 TABLETS AT NIGHT
     Route: 048
     Dates: start: 20070101
  2. TYKERB [Suspect]
     Indication: BREAST CANCER
     Route: 065
     Dates: start: 20070101

REACTIONS (2)
  - ILL-DEFINED DISORDER [None]
  - MALIGNANT NEOPLASM PROGRESSION [None]
